FAERS Safety Report 20654516 (Version 1)
Quarter: 2022Q1

REPORT INFORMATION
  Report Type: Report from Study
  Country: CA (occurrence: CA)
  Receive Date: 20220330
  Receipt Date: 20220330
  Transmission Date: 20220424
  Serious: Yes (Death)
  Sender: FDA-Public Use
  Company Number: CA-BAYER-2022A045352

PATIENT
  Age: 50 Year
  Sex: Female

DRUGS (15)
  1. ADEMPAS [Suspect]
     Active Substance: RIOCIGUAT
     Indication: Pulmonary hypertension
     Dosage: 2.5 MG
     Dates: start: 20210727, end: 20220321
  2. UPTRAVI [Concomitant]
     Active Substance: SELEXIPAG
  3. AMBRISENTAN [Concomitant]
     Active Substance: AMBRISENTAN
  4. CLONAZEPAM [Concomitant]
     Active Substance: CLONAZEPAM
  5. TYLENOL [Concomitant]
     Active Substance: ACETAMINOPHEN
  6. APIXABAN [Concomitant]
     Active Substance: APIXABAN
  7. FENTANYL [Concomitant]
     Active Substance: FENTANYL
  8. MELATONIN [Concomitant]
     Active Substance: MELATONIN
  9. METOLAZONE [Concomitant]
     Active Substance: METOLAZONE
  10. LEVOMEPROMAZINE [Concomitant]
     Active Substance: LEVOMEPROMAZINE
  11. MACITENTAN [Concomitant]
     Active Substance: MACITENTAN
  12. PANTOPRAZOLE [Concomitant]
     Active Substance: PANTOPRAZOLE
  13. POLYETHYLENE GLYCOL 3350 [Concomitant]
     Active Substance: POLYETHYLENE GLYCOL 3350
  14. SENNA [Concomitant]
     Active Substance: SENNA LEAF\SENNOSIDES\SENNOSIDES A AND B
  15. HYDROMORPHONE [Concomitant]
     Active Substance: HYDROMORPHONE

REACTIONS (1)
  - Death [Fatal]

NARRATIVE: CASE EVENT DATE: 20220321
